FAERS Safety Report 26077507 (Version 1)
Quarter: 2025Q4

REPORT INFORMATION
  Report Type: Spontaneous
  Country: US (occurrence: US)
  Receive Date: 20251121
  Receipt Date: 20251121
  Transmission Date: 20260117
  Serious: No
  Sender: NOVO NORDISK
  Company Number: US-NOVOPROD-1471353

PATIENT
  Age: 66 Year
  Sex: Female

DRUGS (3)
  1. TRESIBA [Suspect]
     Active Substance: INSULIN DEGLUDEC
     Indication: Type 2 diabetes mellitus
     Dosage: 44 UNITS ONCE A DAY. THEN, 30 -32 UNITS. THEN, DOSE WAS DECREASED TO 6 UNITS ONCE A DAY
     Route: 058
     Dates: start: 2021, end: 20250618
  2. OZEMPIC [Suspect]
     Active Substance: SEMAGLUTIDE
     Indication: Type 2 diabetes mellitus
     Dosage: 2 MG, QW
     Route: 058
     Dates: start: 20250201
  3. OZEMPIC [Suspect]
     Active Substance: SEMAGLUTIDE
     Indication: Type 2 diabetes mellitus
     Dosage: UNK
     Route: 058
     Dates: end: 2025

REACTIONS (9)
  - Decreased appetite [Recovered/Resolved]
  - Abdominal distension [Unknown]
  - Weight decreased [Recovered/Resolved]
  - Food craving [Not Recovered/Not Resolved]
  - Weight increased [Recovered/Resolved]
  - Hypoglycaemia [Not Recovered/Not Resolved]
  - Blood glucose decreased [Recovered/Resolved]
  - Drug hypersensitivity [Not Recovered/Not Resolved]
  - Product dose omission issue [Unknown]

NARRATIVE: CASE EVENT DATE: 20210101
